FAERS Safety Report 4938645-2 (Version None)
Quarter: 2006Q1

REPORT INFORMATION
  Report Type: 
  Country: None (occurrence: None)
  Receive Date: 20060306
  Receipt Date: 20060216
  Transmission Date: 20060701
  Serious: Yes (Other)
  Sender: FDA-Public Use
  Company Number: TRP_0714_2006

PATIENT
  Age: 55 Year
  Sex: Male

DRUGS (16)
  1. RIBASPHERE [Suspect]
     Indication: HEPATITIS C
     Dosage: 1200 MG QDAY PO
     Route: 048
     Dates: start: 20041228, end: 20050127
  2. RIBASPHERE [Suspect]
     Indication: HEPATITIS C
     Dosage: 600 MGQDAY PO
     Route: 048
     Dates: start: 20050127, end: 20050325
  3. FLOMAX [Concomitant]
  4. PREVACID [Concomitant]
  5. ACETAMINOPHEN [Concomitant]
  6. RIBASPHERE [Suspect]
     Indication: HEPATITIS C
     Dosage: 800 MG QDAY PO
     Route: 048
     Dates: start: 20050325, end: 20050531
  7. INTERFERON GAMMA 1B/IFN-GAMMA-1B/INTERMUNE [Suspect]
     Indication: HEPATITIS C
     Dosage: 100 MCG 3XWK SC
     Route: 058
     Dates: start: 20041228, end: 20050529
  8. CONSENSUS INTERFERON ALFA/INTERFERON ALFACON-1 /CIFN/VALEANT [Suspect]
     Indication: HEPATITIS C
     Dosage: 15 MG QDAY SC
     Route: 058
     Dates: start: 20041228, end: 20050530
  9. FLOMAX [Concomitant]
  10. PREVACID [Concomitant]
  11. ACETAMINOPHEN [Concomitant]
  12. IBUPROFEN [Concomitant]
  13. AMBIEN [Concomitant]
  14. CELEXA [Concomitant]
  15. COLACE [Concomitant]
  16. MULTI-VITAMIN [Concomitant]

REACTIONS (3)
  - APHASIA [None]
  - DYSARTHRIA [None]
  - DYSPHASIA [None]
